FAERS Safety Report 6146476-3 (Version None)
Quarter: 2009Q2

REPORT INFORMATION
  Report Type: 
  Country: None (occurrence: None)
  Receive Date: 20090407
  Receipt Date: 20090402
  Transmission Date: 20091009
  Serious: Yes (Death, Hospitalization)
  Sender: FDA-Public Use
  Company Number: B0523969A

PATIENT
  Sex: Male
  Weight: 40 kg

DRUGS (1)
  1. MODACIN [Suspect]
     Dosage: 1G TWICE PER DAY
     Route: 042
     Dates: start: 20080508, end: 20080515

REACTIONS (7)
  - BLOOD PRESSURE DECREASED [None]
  - BODY TEMPERATURE INCREASED [None]
  - DISSEMINATED INTRAVASCULAR COAGULATION [None]
  - HYPOVOLAEMIC SHOCK [None]
  - LIVER DISORDER [None]
  - PNEUMONIA [None]
  - PYREXIA [None]
